FAERS Safety Report 7015943-2 (Version None)
Quarter: 2010Q3

REPORT INFORMATION
  Report Type: 
  Country: None (occurrence: None)
  Receive Date: 20100927
  Receipt Date: 20090821
  Transmission Date: 20110219
  Serious: No
  Sender: FDA-Public Use
  Company Number: US-ASTRAZENECA-2009SE09367

PATIENT
  Age: 57 Year
  Sex: Female
  Weight: 59 kg

DRUGS (4)
  1. ARIMIDEX [Suspect]
     Indication: BREAST CANCER
     Route: 048
     Dates: start: 20090801
  2. COENZYME Q10 [Interacting]
     Route: 065
  3. SULFASALAZINE [Concomitant]
  4. SYNTHROID [Concomitant]

REACTIONS (6)
  - ARTHRALGIA [None]
  - FATIGUE [None]
  - HOT FLUSH [None]
  - INSOMNIA [None]
  - OEDEMA PERIPHERAL [None]
  - POTENTIATING DRUG INTERACTION [None]
